FAERS Safety Report 9392532 (Version 1)
Quarter: 2013Q3

REPORT INFORMATION
  Report Type: Spontaneous
  Country: US (occurrence: None)
  Receive Date: 20130708
  Receipt Date: 20130708
  Transmission Date: 20140515
  Serious: No
  Sender: FDA-Public Use
  Company Number: None

PATIENT
  Age: 69 Year
  Sex: Male

DRUGS (3)
  1. EFFIENT [Suspect]
     Indication: THROMBOSIS PROPHYLAXIS
     Route: 048
     Dates: start: 20120822, end: 20130706
  2. EFFIENT [Suspect]
     Indication: POSTOPERATIVE CARE
     Route: 048
     Dates: start: 20120822, end: 20130706
  3. EFFIENT [Suspect]
     Indication: STENT PLACEMENT
     Route: 048
     Dates: start: 20120822, end: 20130706

REACTIONS (2)
  - Aortic stenosis [None]
  - Condition aggravated [None]
